FAERS Safety Report 7186540-3 (Version None)
Quarter: 2010Q4

REPORT INFORMATION
  Report Type: 
  Country: None (occurrence: None)
  Receive Date: 20101222
  Receipt Date: 20101210
  Transmission Date: 20110411
  Serious: Yes (Other)
  Sender: FDA-Public Use
  Company Number: JP-ELI_LILLY_AND_COMPANY-JP201003005830

PATIENT
  Age: 70 Year
  Sex: Male

DRUGS (3)
  1. ALIMTA [Suspect]
     Indication: LUNG ADENOCARCINOMA STAGE IV
     Dosage: UNK, UNK
     Route: 042
     Dates: start: 20100219
  2. PANVITAN [Concomitant]
     Dosage: 1 G, DAILY (1/D)
     Route: 048
     Dates: start: 20100206, end: 20100316
  3. METHYCOBAL [Concomitant]
     Dosage: 1000 UG, UNK
     Route: 030
     Dates: start: 20100205, end: 20100205

REACTIONS (1)
  - PNEUMATOSIS INTESTINALIS [None]
